FAERS Safety Report 4889944-4 (Version None)
Quarter: 2006Q1

REPORT INFORMATION
  Report Type: 
  Country: None (occurrence: None)
  Receive Date: 20060124
  Receipt Date: 20060120
  Transmission Date: 20060701
  Serious: Yes (Life-Threatening, Hospitalization)
  Sender: FDA-Public Use
  Company Number: NO-SANOFI-SYNTHELABO-F01200600183

PATIENT
  Sex: Male

DRUGS (8)
  1. ELOXATIN [Suspect]
     Route: 041
     Dates: start: 20051121, end: 20051121
  2. XELODA [Suspect]
     Dosage: DOSE NOT PROVIDED
     Route: 048
     Dates: start: 20051121, end: 20051124
  3. SOLU-CORTEF [Concomitant]
  4. EPINEPHRINE [Concomitant]
     Route: 030
  5. NAVOBAN [Concomitant]
  6. FORTECORTIN [Concomitant]
  7. AERIUS [Concomitant]
     Route: 048
  8. AFIPRAN [Concomitant]

REACTIONS (1)
  - RENAL FAILURE ACUTE [None]
